FAERS Safety Report 4618880-3 (Version None)
Quarter: 2005Q1

REPORT INFORMATION
  Report Type: 
  Country: None (occurrence: None)
  Receive Date: 20050323
  Receipt Date: 20050308
  Transmission Date: 20050727
  Serious: Yes (Other)
  Sender: FDA-Public Use
  Company Number: 2005042027

PATIENT
  Age: 69 Year
  Sex: Male
  Weight: 72.5755 kg

DRUGS (5)
  1. CELEBREX [Suspect]
     Indication: RHEUMATOID ARTHRITIS
     Dosage: 400 MG (200 MG, 2 IN 1 D), ORAL
     Route: 048
     Dates: start: 20040101, end: 20041201
  2. RISEDRONATE SODIUM (RISEDRONATE SODIUM) [Concomitant]
  3. UBIDECARENONE (UBIDECARENONE) [Concomitant]
  4. DONEPEZIL HCL [Concomitant]
  5. PREDNISONE [Concomitant]

REACTIONS (1)
  - CARDIAC PACEMAKER INSERTION [None]
